FAERS Safety Report 21131817 (Version 2)
Quarter: 2023Q1

REPORT INFORMATION
  Report Type: Report from Study
  Country: US (occurrence: US)
  Receive Date: 20220726
  Receipt Date: 20230328
  Transmission Date: 20230417
  Serious: Yes (Other)
  Sender: FDA-Public Use
  Company Number: US-TAKEDA-US202009406

PATIENT
  Age: 39 Year
  Sex: Female

DRUGS (28)
  1. HUMAN IMMUNOGLOBULIN G [Suspect]
     Active Substance: HUMAN IMMUNOGLOBULIN G
     Indication: Primary immunodeficiency syndrome
     Dosage: 10 GRAM, 1/WEEK
     Route: 065
  2. HUMAN IMMUNOGLOBULIN G [Suspect]
     Active Substance: HUMAN IMMUNOGLOBULIN G
     Indication: Selective polysaccharide antibody deficiency
     Dosage: 12 GRAM, 1/WEEK
     Route: 058
  3. HUMAN IMMUNOGLOBULIN G [Suspect]
     Active Substance: HUMAN IMMUNOGLOBULIN G
     Indication: Immune system disorder
  4. DIPHENHYDRAMINE [Concomitant]
     Active Substance: DIPHENHYDRAMINE
  5. HEPARIN [Concomitant]
     Active Substance: HEPARIN SODIUM
  6. PROPRANOLOL HYDROCHLORIDE [Concomitant]
     Active Substance: PROPRANOLOL HYDROCHLORIDE
  7. EPINEPHRINE [Concomitant]
     Active Substance: EPINEPHRINE
  8. SODIUM CHLORIDE [Concomitant]
     Active Substance: SODIUM CHLORIDE
  9. SPIRONOLACTONE [Concomitant]
     Active Substance: SPIRONOLACTONE
  10. GABAPENTIN [Concomitant]
     Active Substance: GABAPENTIN
  11. NEXIUM [Concomitant]
     Active Substance: ESOMEPRAZOLE MAGNESIUM
  12. MOMETASONE FUROATE [Concomitant]
     Active Substance: MOMETASONE FUROATE
  13. ACETAMINOPHEN [Concomitant]
     Active Substance: ACETAMINOPHEN
  14. FAMOTIDINE [Concomitant]
     Active Substance: FAMOTIDINE
  15. BELBUCA [Concomitant]
     Active Substance: BUPRENORPHINE HYDROCHLORIDE
  16. PROMETHAZINE HYDROCHLORIDE [Concomitant]
     Active Substance: PROMETHAZINE HYDROCHLORIDE
  17. DILTIAZEM HYDROCHLORIDE [Concomitant]
     Active Substance: DILTIAZEM HYDROCHLORIDE
  18. SELEEN [Concomitant]
  19. THIAMINE HYDROCHLORIDE [Concomitant]
     Active Substance: THIAMINE HYDROCHLORIDE
  20. ASPIRIN [Concomitant]
     Active Substance: ASPIRIN
  21. TIROSINT [Concomitant]
     Active Substance: LEVOTHYROXINE SODIUM
  22. CETIRIZINE HCL [Concomitant]
     Active Substance: CETIRIZINE HYDROCHLORIDE
  23. PIOGLITAZONE [Concomitant]
     Active Substance: PIOGLITAZONE
  24. CLOBETASOL [Concomitant]
     Active Substance: CLOBETASOL
  25. LUNESTA [Concomitant]
     Active Substance: ESZOPICLONE
  26. Lmx [Concomitant]
  27. VENLAFAXINE HCL [Concomitant]
     Active Substance: VENLAFAXINE HYDROCHLORIDE
  28. BENADRYL ALLERGY [Concomitant]
     Active Substance: DIPHENHYDRAMINE HYDROCHLORIDE

REACTIONS (8)
  - Cerebrospinal fluid leakage [Unknown]
  - Intracranial infection [Unknown]
  - Gastrooesophageal reflux disease [Unknown]
  - Discomfort [Unknown]
  - Weight increased [Unknown]
  - Infection [Unknown]
  - General physical health deterioration [Unknown]
  - Sinusitis [Unknown]

NARRATIVE: CASE EVENT DATE: 20191201
